FAERS Safety Report 25832719 (Version 2)
Quarter: 2025Q4

REPORT INFORMATION
  Report Type: Report from Study
  Country: CO (occurrence: CO)
  Receive Date: 20250922
  Receipt Date: 20251104
  Transmission Date: 20260118
  Serious: Yes (Hospitalization)
  Sender: NOVARTIS
  Company Number: CO-002147023-NVSC2025CO147543

PATIENT
  Sex: Female
  Weight: 58 kg

DRUGS (5)
  1. GILENYA [Suspect]
     Active Substance: FINGOLIMOD HYDROCHLORIDE
     Indication: Product used for unknown indication
     Dosage: 1 DOSAGE FORM, QD (5MG)
     Route: 048
     Dates: start: 20250425
  2. GILENYA [Suspect]
     Active Substance: FINGOLIMOD HYDROCHLORIDE
     Dosage: UNK, LOADING DOSE
     Route: 065
     Dates: start: 20250909
  3. GILENYA [Suspect]
     Active Substance: FINGOLIMOD HYDROCHLORIDE
     Dosage: UNK
     Route: 065
     Dates: start: 20251007
  4. SERTRALINE [Concomitant]
     Active Substance: SERTRALINE HYDROCHLORIDE
     Indication: Product used for unknown indication
     Dosage: UNK, QD
     Route: 065
  5. TRAZODONE [Concomitant]
     Active Substance: TRAZODONE HYDROCHLORIDE
     Indication: Product used for unknown indication
     Dosage: UNK, QD (EVERY 24 HOURS (AT NIGHT))
     Route: 065

REACTIONS (5)
  - Condition aggravated [Recovered/Resolved]
  - General physical health deterioration [Recovered/Resolved]
  - Drug ineffective [Unknown]
  - Muscular weakness [Unknown]
  - Off label use [Unknown]
